FAERS Safety Report 7430576-1 (Version None)
Quarter: 2011Q2

REPORT INFORMATION
  Report Type: 
  Country: None (occurrence: None)
  Receive Date: 20110421
  Receipt Date: 20100608
  Transmission Date: 20111010
  Serious: No
  Sender: FDA-Public Use
  Company Number: US-ASTRAZENECA-2010SE26456

PATIENT
  Age: 63 Year
  Sex: Male
  Weight: 120.2 kg

DRUGS (7)
  1. TOPROL-XL [Suspect]
     Indication: TACHYCARDIA
     Route: 048
  2. MINOCYCLINE [Concomitant]
  3. GLUCOPHAGE [Concomitant]
  4. ADVAIR HFA [Concomitant]
  5. TOPROL-XL [Suspect]
     Route: 048
     Dates: start: 20050101
  6. VOLTAREN [Concomitant]
  7. C-PAP DEVICE [Concomitant]

REACTIONS (4)
  - SOMNOLENCE [None]
  - INSOMNIA [None]
  - SLEEP APNOEA SYNDROME [None]
  - DYSPNOEA [None]
